FAERS Safety Report 8764964 (Version 1)
Quarter: 2012Q4

REPORT INFORMATION
  Report Type: Report from Study
  Country: KR (occurrence: KR)
  Receive Date: 20120903
  Receipt Date: 20121010
  Transmission Date: 20130627
  Serious: Yes (Hospitalization)
  Sender: FDA-Public Use
  Company Number: KR-009507513-1208KOR007743

PATIENT
  Age: 77 Year
  Sex: Male
  Weight: 53 kg

DRUGS (6)
  1. APREPITANT [Suspect]
     Indication: PROPHYLAXIS OF NAUSEA AND VOMITING
     Dosage: 125.00 mg, qd
     Route: 048
     Dates: start: 20070717, end: 20070717
  2. APREPITANT [Suspect]
     Dosage: 80 UNK, UNK
     Route: 048
     Dates: start: 20070718, end: 20070719
  3. CARBOPLATIN [Suspect]
     Indication: CHEMOTHERAPY
     Dosage: 310 mg, qd
     Route: 042
     Dates: start: 20070717, end: 20070717
  4. PACLITAXEL [Suspect]
     Indication: CHEMOTHERAPY
     Dosage: 220 mg, qd
     Route: 048
     Dates: start: 20070717, end: 20070717
  5. DEXAMETHASONE [Suspect]
     Indication: PROPHYLAXIS
     Dosage: 10 mg, qd
     Route: 048
     Dates: start: 20070717, end: 20070717
  6. GRANISETRON [Suspect]
     Indication: PROPHYLAXIS OF NAUSEA AND VOMITING
     Dosage: 3 mg, qd
     Route: 048
     Dates: start: 20070717, end: 20070717

REACTIONS (1)
  - Pyrexia [Recovered/Resolved]
